FAERS Safety Report 7435226-6 (Version None)
Quarter: 2011Q2

REPORT INFORMATION
  Report Type: 
  Country: None (occurrence: None)
  Receive Date: 20110425
  Receipt Date: 20110419
  Transmission Date: 20111010
  Serious: Yes (Hospitalization)
  Sender: FDA-Public Use
  Company Number: US-GENZYME-THYM-1001093

PATIENT
  Sex: Male
  Weight: 66 kg

DRUGS (3)
  1. THYMOGLOBULIN [Suspect]
     Indication: CHRONIC LYMPHOCYTIC LEUKAEMIA
  2. TOTAL BODY IRRADIATION [Concomitant]
     Indication: BONE MARROW CONDITIONING REGIMEN
  3. THYMOGLOBULIN [Suspect]
     Indication: BONE MARROW CONDITIONING REGIMEN
     Dosage: 2.5 MG/KG, QD
     Route: 042
     Dates: start: 20090210, end: 20090212

REACTIONS (8)
  - SEPTIC SHOCK [None]
  - ACUTE GRAFT VERSUS HOST DISEASE IN INTESTINE [None]
  - FUNGAL INFECTION [None]
  - HYPERKALAEMIA [None]
  - CLOSTRIDIUM DIFFICILE COLITIS [None]
  - HYPONATRAEMIA [None]
  - DEHYDRATION [None]
  - HYPOTENSION [None]
